FAERS Safety Report 24882237 (Version 1)
Quarter: 2025Q1

REPORT INFORMATION
  Report Type: Report from Study
  Country: CA (occurrence: CA)
  Receive Date: 20250124
  Receipt Date: 20250124
  Transmission Date: 20250408
  Serious: Yes (Hospitalization)
  Sender: ABBVIE
  Company Number: CA-ABBVIE-6092490

PATIENT
  Age: 63 Year
  Sex: Female

DRUGS (1)
  1. SKYRIZI [Suspect]
     Active Substance: RISANKIZUMAB-RZAA
     Indication: Crohn^s disease
     Route: 058
     Dates: start: 20230404

REACTIONS (9)
  - Osteoporosis [Unknown]
  - Osteomyelitis [Unknown]
  - Arthritis [Unknown]
  - Gastritis [Unknown]
  - Rhinitis [Unknown]
  - Pain [Unknown]
  - Skin laceration [Unknown]
  - Impaired healing [Unknown]
  - Swelling [Unknown]
